FAERS Safety Report 7209773-6 (Version None)
Quarter: 2011Q1

REPORT INFORMATION
  Report Type: 
  Country: None (occurrence: None)
  Receive Date: 20110104
  Receipt Date: 20101229
  Transmission Date: 20110831
  Serious: Yes (Hospitalization)
  Sender: FDA-Public Use
  Company Number: US-B.I. PHARMACEUTICALS,INC./RIDGEFIELD-2010-BP-13008BP

PATIENT
  Age: 82 Year
  Sex: Female
  Weight: 65.32 kg

DRUGS (7)
  1. CARDIPRIN [Concomitant]
     Dates: start: 20101115
  2. AVALIDE/HCTZ [Concomitant]
  3. ALLOPURINOL [Concomitant]
     Dosage: 100 MG
  4. PRADAXA [Suspect]
     Indication: ATRIAL FIBRILLATION
     Dosage: 300 MG
     Dates: start: 20101117, end: 20101118
  5. PRADAXA [Suspect]
     Indication: ATRIAL FLUTTER
  6. ZETIA [Concomitant]
  7. TOPROL-XL [Concomitant]

REACTIONS (5)
  - RECTAL HAEMORRHAGE [None]
  - POLYP [None]
  - HAEMOGLOBIN DECREASED [None]
  - LOWER GASTROINTESTINAL HAEMORRHAGE [None]
  - DIVERTICULUM [None]
